FAERS Safety Report 15782624 (Version 1)
Quarter: 2019Q1

REPORT INFORMATION
  Report Type: Spontaneous
  Country: US (occurrence: US)
  Receive Date: 20190102
  Receipt Date: 20190102
  Transmission Date: 20190417
  Serious: Yes (Other)
  Sender: FDA-Public Use
  Company Number: US-SA-2019SA000350

PATIENT
  Age: 77 Year
  Sex: Male
  Weight: 69.84 kg

DRUGS (4)
  1. METOPROLOL. [Concomitant]
     Active Substance: METOPROLOL
  2. CALCIUM CARBONATE. [Suspect]
     Active Substance: CALCIUM CARBONATE
     Indication: CHEST PAIN
  3. WELCHOL [Suspect]
     Active Substance: COLESEVELAM HYDROCHLORIDE
     Indication: BLOOD CHOLESTEROL INCREASED
     Dosage: 3750 MG, QD
     Route: 048
     Dates: start: 2003
  4. CALCIUM CARBONATE. [Suspect]
     Active Substance: CALCIUM CARBONATE
     Indication: OESOPHAGEAL PAIN
     Dosage: UNK
     Route: 065
     Dates: start: 20181223

REACTIONS (8)
  - Gastrooesophageal reflux disease [Not Recovered/Not Resolved]
  - Foaming at mouth [Recovered/Resolved]
  - Atrial fibrillation [Not Recovered/Not Resolved]
  - Oesophageal pain [Unknown]
  - Chronic obstructive pulmonary disease [Not Recovered/Not Resolved]
  - Drug interaction [Recovered/Resolved]
  - Product administration error [Unknown]
  - Chest pain [Unknown]

NARRATIVE: CASE EVENT DATE: 2004
